FAERS Safety Report 8844388 (Version 1)
Quarter: 2012Q4

REPORT INFORMATION
  Report Type: 
  Country: US (occurrence: US)
  Receive Date: 20121017
  Receipt Date: 20121017
  Transmission Date: 20130627
  Serious: Yes (Other)
  Sender: FDA-Public Use
  Company Number: PHHY2012US090468

PATIENT
  Age: 57 Year
  Sex: Female

DRUGS (7)
  1. ZOLEDRONIC ACID [Suspect]
     Dosage: 4 mg, once monthly
     Dates: start: 200811
  2. ARIMIDEX [Suspect]
     Dosage: 1 mg, daily
     Dates: end: 2009
  3. GEMCITABINE [Concomitant]
     Dosage: 1250 mg/m2 (2260 mg total dose) on days 1 and 8 of a 21-day cycle
     Dates: start: 20101027
  4. GEMCITABINE [Concomitant]
     Dosage: 1250 mg/m2 (2260 mg total dose) on days 1 and 8 of a 21-day cycle
     Dates: start: 20101104
  5. GEMCITABINE [Concomitant]
     Dosage: 1250 mg/m2 (2260 mg total dose) on days 1 and 8 of a 21-day cycle
     Dates: start: 20101117
  6. GEMCITABINE [Concomitant]
     Dosage: 1250 mg/m2 (2260 mg total dose) on days 1 and 8 of a 21-day cycle
     Dates: start: 20101124
  7. XELODA [Concomitant]

REACTIONS (13)
  - Grand mal convulsion [Unknown]
  - Arterial thrombosis [Unknown]
  - Renal vein thrombosis [Unknown]
  - Splenic vein thrombosis [Unknown]
  - Neoplasm progression [Unknown]
  - Malignant neoplasm progression [Unknown]
  - Blood pressure systolic increased [Recovering/Resolving]
  - Abdominal pain [Unknown]
  - Nausea [Unknown]
  - Vomiting [Unknown]
  - Decreased appetite [Unknown]
  - Headache [Unknown]
  - Vision blurred [Unknown]
